FAERS Safety Report 6068400-4 (Version None)
Quarter: 2009Q1

REPORT INFORMATION
  Report Type: 
  Country: None (occurrence: None)
  Receive Date: 20090206
  Receipt Date: 20090202
  Transmission Date: 20090719
  Serious: Yes (Other)
  Sender: FDA-Public Use
  Company Number: DE-TEVA-184769ISR

PATIENT
  Age: 66 Year
  Sex: Male

DRUGS (2)
  1. FLUDARABINE PHOSPHATE [Suspect]
     Dates: start: 20040101
  2. GEMCITABINE [Suspect]
     Dates: start: 20060101

REACTIONS (2)
  - LYMPHADENITIS VIRAL [None]
  - METASTATIC SQUAMOUS CELL CARCINOMA [None]
